FAERS Safety Report 9036429 (Version 1)
Quarter: 2013Q1

REPORT INFORMATION
  Report Type: Spontaneous
  Country: IT (occurrence: None)
  Receive Date: 20130114
  Receipt Date: 20130114
  Transmission Date: 20140127
  Serious: Yes (Other)
  Sender: FDA-Public Use
  Company Number: KAD201301-000045

PATIENT
  Sex: Female

DRUGS (2)
  1. RIBAVIRIN (RIBAVIRIN) [Suspect]
     Indication: CHRONIC HEPATITIS C
  2. PEGYLATED INTERFERON [Suspect]
     Indication: CHRONIC HEPATITIS C

REACTIONS (1)
  - Autoimmune hepatitis [None]
